FAERS Safety Report 14766166 (Version 1)
Quarter: 2018Q2

REPORT INFORMATION
  Report Type: Spontaneous
  Country: US (occurrence: US)
  Receive Date: 20180416
  Receipt Date: 20180416
  Transmission Date: 20180711
  Serious: Yes (Hospitalization, Other)
  Sender: FDA-Public Use
  Company Number: US-ASTELLAS-2017US020667

PATIENT
  Age: 30 Year
  Sex: Female

DRUGS (1)
  1. PROGRAF [Suspect]
     Active Substance: TACROLIMUS\TACROLIMUS ANHYDROUS
     Indication: PRODUCT USED FOR UNKNOWN INDICATION
     Dosage: 7 MG, TWICE DAILY (4 CAPSULES AT AM/ 3 CAPSULES AT PM)
     Route: 048
     Dates: start: 20140414

REACTIONS (3)
  - Pain [Unknown]
  - Pyrexia [Unknown]
  - Swelling [Unknown]

NARRATIVE: CASE EVENT DATE: 20170522
